FAERS Safety Report 15554524 (Version 1)
Quarter: 2018Q4

REPORT INFORMATION
  Report Type: Report from Study
  Country: DE (occurrence: DE)
  Receive Date: 20181026
  Receipt Date: 20181026
  Transmission Date: 20190205
  Serious: Yes (Hospitalization)
  Sender: FDA-Public Use
  Company Number: DE-ROCHE-2203968

PATIENT
  Age: 72 Year
  Sex: Male

DRUGS (4)
  1. VEMURAFENIB. [Suspect]
     Active Substance: VEMURAFENIB
     Indication: MALIGNANT MELANOMA
     Dosage: DATE OF LAST DOSE PRIOR TO SAE/AESI: 19/JUL/2017?DOSE 960MG BID (AS PER PROTOCOL)
     Route: 048
     Dates: start: 20170622, end: 20170721
  2. COBIMETINIB. [Suspect]
     Active Substance: COBIMETINIB
     Indication: MALIGNANT MELANOMA
     Dosage: DATE OF LAST DOSE PRIOR TO SAE/AESI: 19/JUL/2017?DOSE: 60MG DAILY (AS PER PROTOCOL)
     Route: 048
     Dates: start: 20170622, end: 20170721
  3. VOCADO HCT [Concomitant]
     Active Substance: AMLODIPINE BESYLATE\HYDROCHLOROTHIAZIDE\OLMESARTAN MEDOXOMIL
     Dosage: 1 OTHER?40/10/25MG
     Route: 065
  4. RASILEZ [Concomitant]
     Active Substance: ALISKIREN
     Route: 065

REACTIONS (1)
  - Acute kidney injury [Recovered/Resolved]

NARRATIVE: CASE EVENT DATE: 20170721
